FAERS Safety Report 5683007-6 (Version None)
Quarter: 2008Q1

REPORT INFORMATION
  Report Type: 
  Country: None (occurrence: None)
  Receive Date: 20080327
  Receipt Date: 20080319
  Transmission Date: 20080703
  Serious: Yes (Other)
  Sender: FDA-Public Use
  Company Number: US-GENENTECH-257530

PATIENT
  Age: 60 Year
  Sex: Female

DRUGS (6)
  1. BEVACIZUMAB [Suspect]
     Indication: COLON CANCER METASTATIC
     Dosage: 5 MG/KG, QOW
     Route: 042
     Dates: start: 20060130
  2. OXALIPLATIN [Concomitant]
     Indication: COLON CANCER METASTATIC
     Dosage: 85 MG/M2, Q2W
     Route: 042
     Dates: start: 20060130, end: 20060717
  3. FLUOROURACIL [Concomitant]
     Indication: COLON CANCER METASTATIC
     Dosage: 400 MG/M2, Q2W
     Route: 042
     Dates: start: 20060130
  4. FLUOROURACIL [Concomitant]
     Dosage: 2400 MG/M2, Q2W
     Route: 042
     Dates: start: 20060130
  5. LEUCOVORIN CALCIUM [Concomitant]
     Indication: COLON CANCER METASTATIC
     Dosage: 400 MG/M2, Q2W
     Route: 042
     Dates: start: 20060130, end: 20070521
  6. CETUXIMAB [Concomitant]
     Indication: COLON CANCER METASTATIC
     Dosage: 250 MG/M2, 2/MONTH
     Route: 042
     Dates: start: 20060130

REACTIONS (1)
  - VARICES OESOPHAGEAL [None]
